FAERS Safety Report 14290594 (Version 1)
Quarter: 2017Q4

REPORT INFORMATION
  Report Type: Spontaneous
  Country: US (occurrence: US)
  Receive Date: 20171215
  Receipt Date: 20171215
  Transmission Date: 20180321
  Serious: Yes (Disabling)
  Sender: FDA-Public Use
  Company Number: None

PATIENT
  Age: 35 Year
  Sex: Female
  Weight: 57.15 kg

DRUGS (2)
  1. PPI (PRILOSEC) [Concomitant]
  2. EQUATE WOMEN^S ADULT GUMMIE COMPLETE MULTIVITAMIN DIETARY SUPPLEMENT [Suspect]
     Active Substance: MINERALS\VITAMINS
     Indication: HYPOVITAMINOSIS
     Dosage: QUANTITY:2 GUMMIES;?
     Route: 048
     Dates: start: 20171013, end: 20171213

REACTIONS (8)
  - Hypovitaminosis [None]
  - Chest pain [None]
  - Gastroenteritis viral [None]
  - Fatigue [None]
  - Gastrooesophageal reflux disease [None]
  - Mental disorder [None]
  - Weight decreased [None]
  - Arthralgia [None]

NARRATIVE: CASE EVENT DATE: 20171023
